FAERS Safety Report 4718281-3 (Version None)
Quarter: 2005Q3

REPORT INFORMATION
  Report Type: 
  Country: None (occurrence: None)
  Receive Date: 20050719
  Receipt Date: 20050315
  Transmission Date: 20060218
  Serious: Yes (Hospitalization, Other)
  Sender: FDA-Public Use
  Company Number: 2005036349

PATIENT
  Age: 38 Year
  Sex: Female

DRUGS (5)
  1. CELEBREX [Suspect]
     Indication: ARTHRALGIA
     Dosage: 400 MG (200 MG, 2 IN 1 D), ORAL
     Route: 048
     Dates: start: 20000801, end: 20050214
  2. HYDROXYCHLOROQUINE PHOSPHATE (HYDROXYCHLOROQUINE PHOSPHATE) [Concomitant]
  3. RANITIDINE [Concomitant]
  4. FLUOXETINE HCL [Concomitant]
  5. MONTELUKAST SODIUM (MONTELUKAST SODIUM) [Concomitant]

REACTIONS (1)
  - ACUTE MYOCARDIAL INFARCTION [None]
